FAERS Safety Report 7306720-3 (Version None)
Quarter: 2011Q1

REPORT INFORMATION
  Report Type: 
  Country: None (occurrence: None)
  Receive Date: 20110222
  Receipt Date: 20110215
  Transmission Date: 20110831
  Serious: Yes (Hospitalization)
  Sender: FDA-Public Use
  Company Number: GB-AMGEN-GBRCT2010005272

PATIENT
  Age: 78 Year
  Sex: Female

DRUGS (9)
  1. ELLENCE [Concomitant]
     Dosage: UNK
     Dates: start: 20100924
  2. XELODA [Concomitant]
     Dosage: UNK
     Dates: start: 20100924, end: 20101006
  3. DEXAMETHASONE [Concomitant]
     Dosage: UNK
     Dates: start: 20100924
  4. METOCLOPRAMIDE HCL [Concomitant]
     Dosage: UNK
     Dates: start: 20100924
  5. ONDANSETRON [Concomitant]
     Dosage: 8 MG, UNK
     Dates: start: 20100924
  6. OMEPRAZOLE [Concomitant]
     Dosage: UNK
     Dates: start: 20000101
  7. OXALIPLATIN [Concomitant]
     Dosage: UNK
     Dates: start: 20100924
  8. CINNARIZINE [Concomitant]
     Dosage: UNK
     Dates: start: 20101001
  9. PANITUMUMAB [Suspect]
     Indication: GASTRIC CANCER
     Dosage: UNK
     Dates: start: 20100924

REACTIONS (1)
  - FEBRILE NEUTROPENIA [None]
